FAERS Safety Report 6174436-5 (Version None)
Quarter: 2009Q2

REPORT INFORMATION
  Report Type: 
  Country: None (occurrence: None)
  Receive Date: 20090430
  Receipt Date: 20080605
  Transmission Date: 20091009
  Serious: No
  Sender: FDA-Public Use
  Company Number: US-ASTRAZENECA-2008UW11376

PATIENT
  Age: 71 Year
  Sex: Female
  Weight: 56.2 kg

DRUGS (4)
  1. NEXIUM [Suspect]
     Route: 048
     Dates: start: 20061101
  2. CLONIDINE [Concomitant]
  3. PHENERGAN [Concomitant]
  4. AMOXICILLIN [Concomitant]

REACTIONS (9)
  - AGEUSIA [None]
  - CONSTIPATION [None]
  - DYSGEUSIA [None]
  - ILL-DEFINED DISORDER [None]
  - NAUSEA [None]
  - NERVOUSNESS [None]
  - POISONING [None]
  - TACHYCARDIA [None]
  - WEIGHT DECREASED [None]
